FAERS Safety Report 24205719 (Version 1)
Quarter: 2024Q3

REPORT INFORMATION
  Report Type: Spontaneous
  Country: CA (occurrence: CA)
  Receive Date: 20240813
  Receipt Date: 20240813
  Transmission Date: 20241016
  Serious: Yes (Other)
  Sender: SANDOZ
  Company Number: CA-SANDOZ-SDZ2024CA072201

PATIENT
  Age: 45 Year
  Sex: Female

DRUGS (16)
  1. ATORVASTATIN [Suspect]
     Active Substance: ATORVASTATIN
     Dosage: UNK, QD
     Route: 065
  2. ATORVASTATIN [Suspect]
     Active Substance: ATORVASTATIN
     Indication: Type IIa hyperlipidaemia
     Dosage: UNK
     Route: 065
  3. EZETIMIBE [Suspect]
     Active Substance: EZETIMIBE
     Indication: Type IIa hyperlipidaemia
     Dosage: UNK, QD
     Route: 065
  4. EZETIMIBE [Suspect]
     Active Substance: EZETIMIBE
     Dosage: UNK
     Route: 065
  5. EVINACUMAB [Suspect]
     Active Substance: EVINACUMAB
     Dosage: 15 MG/KG
     Route: 042
  6. EVINACUMAB [Suspect]
     Active Substance: EVINACUMAB
     Dosage: UNK
     Route: 042
  7. EVINACUMAB [Suspect]
     Active Substance: EVINACUMAB
     Indication: Type IIa hyperlipidaemia
     Dosage: UNK
     Route: 058
  8. EVINACUMAB [Suspect]
     Active Substance: EVINACUMAB
     Dosage: UNK
     Route: 058
  9. LOMITAPIDE [Suspect]
     Active Substance: LOMITAPIDE
     Dosage: 20 MG
     Route: 065
  10. LOMITAPIDE [Suspect]
     Active Substance: LOMITAPIDE
     Dosage: 5 MG
     Route: 065
  11. LOMITAPIDE [Suspect]
     Active Substance: LOMITAPIDE
     Indication: Type IIa hyperlipidaemia
     Dosage: UNK
     Route: 065
  12. LOMITAPIDE [Suspect]
     Active Substance: LOMITAPIDE
     Dosage: UNK
     Route: 065
  13. LOMITAPIDE [Suspect]
     Active Substance: LOMITAPIDE
     Dosage: UNK
     Route: 065
  14. LOMITAPIDE [Suspect]
     Active Substance: LOMITAPIDE
     Dosage: UNK
     Route: 065
  15. ROSUVASTATIN [Suspect]
     Active Substance: ROSUVASTATIN\ROSUVASTATIN CALCIUM
     Indication: Type IIa hyperlipidaemia
     Dosage: UNK, QD
     Route: 065
  16. ROSUVASTATIN [Suspect]
     Active Substance: ROSUVASTATIN\ROSUVASTATIN CALCIUM
     Dosage: UNK
     Route: 065

REACTIONS (1)
  - Hepatic steatosis [Recovering/Resolving]
